FAERS Safety Report 26207635 (Version 1)
Quarter: 2025Q4

REPORT INFORMATION
  Report Type: Spontaneous
  Country: US (occurrence: None)
  Receive Date: 20251224
  Receipt Date: 20251224
  Transmission Date: 20260118
  Serious: Yes (Other)
  Sender: FDA-CTU
  Company Number: None

PATIENT
  Sex: Female

DRUGS (1)
  1. MICONAZOLE [Suspect]
     Active Substance: MICONAZOLE
     Indication: Fungal infection
     Dosage: OTHER QUANTITY : 1 1;?FREQUENCY : AT BEDTIME;
     Route: 067

REACTIONS (3)
  - Vulvovaginal burning sensation [None]
  - Vulvovaginal pain [None]
  - Vulvovaginal pruritus [None]

NARRATIVE: CASE EVENT DATE: 20251224
